FAERS Safety Report 7757653-X (Version None)
Quarter: 2011Q3

REPORT INFORMATION
  Report Type: 
  Country: None (occurrence: None)
  Receive Date: 20110916
  Receipt Date: 20110912
  Transmission Date: 20111222
  Serious: Yes (Hospitalization)
  Sender: FDA-Public Use
  Company Number: PHHY2011JP34557

PATIENT
  Sex: Male

DRUGS (11)
  1. SEPAMIT [Concomitant]
     Dosage: 30 MG, UNK
     Route: 048
  2. TENORMIN [Concomitant]
     Dosage: 50 MG, UNK
     Route: 048
  3. CEFAZOLIN SODIUM [Concomitant]
     Dosage: 3 DF, UNK
     Route: 048
  4. BETAMETHASONE [Concomitant]
     Dosage: 0.75 MG, UNK
     Route: 048
     Dates: end: 20110331
  5. AFINITOR [Suspect]
     Dosage: 10 MG, UNK
     Route: 048
     Dates: start: 20101227, end: 20110210
  6. AFINITOR [Suspect]
     Dosage: 5 MG, UNK
     Route: 048
     Dates: start: 20110215, end: 20110226
  7. AFINITOR [Suspect]
     Dosage: 10 MG, UNK
     Route: 048
     Dates: start: 20110227, end: 20110314
  8. OMEPRAZOLE [Concomitant]
     Dosage: 20 MG, UNK
     Route: 048
  9. AZUNOL [Concomitant]
     Route: 048
  10. AFINITOR [Suspect]
     Dosage: 5 MG, UNK
     Route: 048
     Dates: start: 20101201, end: 20101226
  11. AFINITOR [Suspect]
     Indication: METASTATIC RENAL CELL CARCINOMA
     Dosage: 10 MG, UNK
     Route: 048
     Dates: start: 20101130, end: 20101130

REACTIONS (2)
  - INTERSTITIAL LUNG DISEASE [None]
  - C-REACTIVE PROTEIN INCREASED [None]
